FAERS Safety Report 9742317 (Version 1)
Quarter: 2013Q4

REPORT INFORMATION
  Report Type: Report from Study
  Country: FR (occurrence: FR)
  Receive Date: 20131210
  Receipt Date: 20131210
  Transmission Date: 20140711
  Serious: Yes (Death, Hospitalization)
  Sender: FDA-Public Use
  Company Number: FR-SA-2013SA126043

PATIENT
  Age: 73 Year
  Sex: Female

DRUGS (3)
  1. CAMPATH [Suspect]
     Indication: PRODUCT USED FOR UNKNOWN INDICATION
     Route: 058
     Dates: start: 20130527, end: 20130626
  2. BACTRIM FORTE [Concomitant]
     Indication: INFECTION PROPHYLAXIS
     Dosage: 01 TABLET
     Dates: start: 201305, end: 201307
  3. ZELITREX [Concomitant]
     Indication: ANTIVIRAL PROPHYLAXIS
     Dates: start: 201305, end: 201307

REACTIONS (2)
  - Pancytopenia [Fatal]
  - Cytomegalovirus infection [Recovered/Resolved]
